FAERS Safety Report 4406312-X (Version None)
Quarter: 2004Q3

REPORT INFORMATION
  Report Type: 
  Country: None (occurrence: None)
  Receive Date: 20040723
  Receipt Date: 20030617
  Transmission Date: 20050211
  Serious: No
  Sender: FDA-Public Use
  Company Number: US-GLAXOSMITHKLINE-A0412675A

PATIENT
  Age: 67 Year
  Sex: Male

DRUGS (6)
  1. AVANDIA [Suspect]
     Dosage: 4MG PER DAY
     Route: 048
     Dates: start: 20030609
  2. GLYBURIDE [Concomitant]
     Route: 048
  3. PROCARDIA [Concomitant]
     Route: 048
  4. DIOVAN [Concomitant]
  5. ATENOLOL [Concomitant]
  6. CARDURA [Concomitant]

REACTIONS (1)
  - BLOOD GLUCOSE INCREASED [None]
